FAERS Safety Report 7130761-2 (Version None)
Quarter: 2010Q4

REPORT INFORMATION
  Report Type: 
  Country: None (occurrence: None)
  Receive Date: 20101101
  Receipt Date: 20100729
  Transmission Date: 20110411
  Serious: No
  Sender: FDA-Public Use
  Company Number: 2010-10501

PATIENT
  Age: 60 Year
  Sex: Male

DRUGS (1)
  1. RAPAFLO [Suspect]
     Indication: URINARY TRACT DISORDER
     Dosage: 1 CAPSULE, DAILY, ORAL
     Route: 048
     Dates: start: 20100401, end: 20100701

REACTIONS (7)
  - DIARRHOEA [None]
  - DIZZINESS [None]
  - HEADACHE [None]
  - NASAL CONGESTION [None]
  - NASOPHARYNGITIS [None]
  - ORTHOSTATIC HYPOTENSION [None]
  - RETROGRADE EJACULATION [None]
